FAERS Safety Report 24048925 (Version 1)
Quarter: 2024Q3

REPORT INFORMATION
  Report Type: Spontaneous
  Country: US (occurrence: US)
  Receive Date: 20240704
  Receipt Date: 20240704
  Transmission Date: 20241016
  Serious: Yes (Other)
  Sender: INFORLIFE
  Company Number: US-INFO-20240175

PATIENT

DRUGS (1)
  1. NOREPINEPHRINE BITARTRATE IN SODIUM CHLORIDE [Suspect]
     Active Substance: NOREPINEPHRINE BITARTRATE
     Dosage: ()

REACTIONS (2)
  - Device connection issue [Unknown]
  - No adverse event [Unknown]
